FAERS Safety Report 9994666 (Version 1)
Quarter: 2014Q1

REPORT INFORMATION
  Report Type: Spontaneous
  Country: US (occurrence: None)
  Receive Date: 20140307
  Receipt Date: 20140307
  Transmission Date: 20141002
  Serious: Yes (Hospitalization)
  Sender: FDA-Public Use
  Company Number: None

PATIENT
  Age: 35 Year
  Sex: Female
  Weight: 76.3 kg

DRUGS (2)
  1. CYCLOPHOSPHAMIDE [Suspect]
     Dates: end: 20140123
  2. DOXORUBICIN HYDROCHLORIDE [Suspect]
     Dates: end: 20140123

REACTIONS (5)
  - Loss of consciousness [None]
  - Tonic clonic movements [None]
  - Drug abuser [None]
  - Convulsion [None]
  - Syncope [None]
